FAERS Safety Report 24760056 (Version 1)
Quarter: 2024Q4

REPORT INFORMATION
  Report Type: Other
  Country: IR (occurrence: IR)
  Receive Date: 20241220
  Receipt Date: 20241220
  Transmission Date: 20250114
  Serious: Yes (Other)
  Sender: B BRAUN
  Company Number: IR-B.Braun Medical Inc.-2167505

PATIENT
  Age: 4 Year
  Sex: Male

DRUGS (8)
  1. MEROPENEM [Suspect]
     Active Substance: MEROPENEM
     Indication: Rash maculo-papular
  2. MEROPENEM [Suspect]
     Active Substance: MEROPENEM
     Indication: Rash vesicular
  3. LINEZOLID [Suspect]
     Active Substance: LINEZOLID
  4. Diclofenac suppositories [Concomitant]
  5. ACYCLOVIR [Concomitant]
     Active Substance: ACYCLOVIR
  6. ACETAMINOPHEN [Concomitant]
     Active Substance: ACETAMINOPHEN
  7. RIFAMPIN [Suspect]
     Active Substance: RIFAMPIN
  8. CLINDAMYCIN [Suspect]
     Active Substance: CLINDAMYCIN

REACTIONS (1)
  - Drug ineffective [Unknown]
